FAERS Safety Report 7611200-1 (Version None)
Quarter: 2011Q3

REPORT INFORMATION
  Report Type: 
  Country: None (occurrence: None)
  Receive Date: 20110715
  Receipt Date: 20110701
  Transmission Date: 20111222
  Serious: Yes (Hospitalization)
  Sender: FDA-Public Use
  Company Number: US-JNJFOC-20110705509

PATIENT
  Age: 56 Year
  Sex: Female
  Weight: 88.91 kg

DRUGS (5)
  1. VERAPAMIL [Concomitant]
     Indication: HYPERTENSION
     Dosage: LESS THAN 5 MONTHS
  2. SINGULAIR [Concomitant]
     Indication: SINUS DISORDER
  3. TYLENOL (CAPLET) [Suspect]
     Route: 048
  4. TYLENOL (CAPLET) [Suspect]
     Indication: HEADACHE
     Route: 048
  5. LUMIGAN [Concomitant]
     Indication: GLAUCOMA

REACTIONS (3)
  - PRODUCT QUALITY ISSUE [None]
  - ABDOMINAL PAIN UPPER [None]
  - LIVER INJURY [None]
